FAERS Safety Report 6929562-7 (Version None)
Quarter: 2010Q3

REPORT INFORMATION
  Report Type: 
  Country: None (occurrence: None)
  Receive Date: 20100818
  Receipt Date: 20100809
  Transmission Date: 20110219
  Serious: Yes (Hospitalization)
  Sender: FDA-Public Use
  Company Number: US-JNJFOC-20100606095

PATIENT
  Age: 24 Year
  Sex: Male
  Weight: 86.18 kg

DRUGS (11)
  1. RISPERDAL CONSTA [Suspect]
     Indication: SCHIZOAFFECTIVE DISORDER
     Route: 030
  2. RISPERDAL CONSTA [Suspect]
     Route: 030
  3. INVEGA SUSTENNA [Suspect]
     Indication: SCHIZOAFFECTIVE DISORDER
     Route: 065
  4. COGENTIN [Concomitant]
     Indication: PRODUCT USED FOR UNKNOWN INDICATION
     Dosage: HS
     Route: 065
  5. RISPERDAL [Concomitant]
     Route: 048
  6. LITHIUM [Concomitant]
     Indication: AFFECTIVE DISORDER
     Route: 048
  7. METFORMIN [Concomitant]
     Indication: DIABETES MELLITUS
     Route: 048
  8. LISINOPRIL [Concomitant]
     Indication: HYPERTENSION
     Route: 048
  9. VERAPAMIL [Concomitant]
     Indication: HYPERTENSION
  10. FLUPHENAZINE [Concomitant]
     Route: 065
  11. TEMAZEPAM [Concomitant]
     Dosage: HS
     Route: 065

REACTIONS (2)
  - HALLUCINATION, AUDITORY [None]
  - OVERDOSE [None]
